FAERS Safety Report 4514955-8 (Version None)
Quarter: 2004Q4

REPORT INFORMATION
  Report Type: 
  Country: None (occurrence: None)
  Receive Date: 20041129
  Receipt Date: 20041129
  Transmission Date: 20050328
  Serious: Yes (Hospitalization)
  Sender: FDA-Public Use
  Company Number: None

PATIENT
  Age: 79 Year
  Sex: Male

DRUGS (2)
  1. NAMENDA [Suspect]
     Indication: DEMENTIA ALZHEIMER'S TYPE
     Dosage: 5 MG   BID   ORAL
     Route: 048
  2. LEVAQUIN [Concomitant]

REACTIONS (3)
  - DYSPNOEA [None]
  - RASH MACULAR [None]
  - RESPIRATORY DISORDER [None]
